FAERS Safety Report 5224127-X (Version None)
Quarter: 2007Q1

REPORT INFORMATION
  Report Type: 
  Country: None (occurrence: None)
  Receive Date: 20070130
  Receipt Date: 20070119
  Transmission Date: 20070707
  Serious: Yes (Other)
  Sender: FDA-Public Use
  Company Number: CH-JNJFOC-20070105462

PATIENT
  Age: 38 Year
  Sex: Male
  Weight: 200 kg

DRUGS (3)
  1. TOPAMAX [Suspect]
     Indication: WEIGHT DECREASED
     Route: 048
  2. SEROPRAM [Concomitant]
     Route: 065
  3. TRITICO [Concomitant]
     Route: 065

REACTIONS (1)
  - BLOOD PROLACTIN INCREASED [None]
